FAERS Safety Report 15439612 (Version 1)
Quarter: 2018Q3

REPORT INFORMATION
  Report Type: Spontaneous
  Country: US (occurrence: US)
  Receive Date: 20180928
  Receipt Date: 20180928
  Transmission Date: 20181010
  Serious: Yes (Hospitalization)
  Sender: FDA-Public Use
  Company Number: US-ABBVIE-18S-163-2501954-00

PATIENT
  Sex: Female

DRUGS (2)
  1. SYNTHROID [Suspect]
     Active Substance: LEVOTHYROXINE SODIUM
     Dosage: TAKE ONE TABLET EVERY OTHER DAY, ALTERNATING WITH 125MCG
     Route: 048
  2. SYNTHROID [Suspect]
     Active Substance: LEVOTHYROXINE SODIUM
     Indication: PRODUCT USED FOR UNKNOWN INDICATION
     Dosage: TAKE ONE TABLET EVERY OTHER DAY, ALTERNATING WITH 137MCG
     Route: 048

REACTIONS (3)
  - Malaise [Unknown]
  - Product odour abnormal [Not Recovered/Not Resolved]
  - Weight decreased [Not Recovered/Not Resolved]
